FAERS Safety Report 15232168 (Version 3)
Quarter: 2019Q2

REPORT INFORMATION
  Report Type: Spontaneous
  Country: US (occurrence: US)
  Receive Date: 20180802
  Receipt Date: 20190404
  Transmission Date: 20190711
  Serious: Yes (Other)
  Sender: FDA-Public Use
  Company Number: US-GILEAD-2018-0345004

PATIENT
  Age: 52 Year
  Sex: Male
  Weight: 71.1 kg

DRUGS (9)
  1. FILGRASTIM [Concomitant]
     Active Substance: FILGRASTIM
     Indication: NEUTROPENIA
     Dosage: 480 MCG, QD, PRN
     Route: 058
     Dates: start: 20171228, end: 20171231
  2. HEPARIN [Concomitant]
     Active Substance: HEPARIN SODIUM
     Dosage: 3 ML, QD
     Route: 042
     Dates: start: 20171226
  3. ZOVIRAX [Concomitant]
     Active Substance: ACYCLOVIR
     Dosage: 400 MG, TID
     Route: 048
     Dates: start: 20171222, end: 20171231
  4. CYCLOPHOSPHAMIDE. [Concomitant]
     Active Substance: CYCLOPHOSPHAMIDE
     Indication: BONE MARROW CONDITIONING REGIMEN
     Dosage: 500 MG/M2, QD
     Route: 042
     Dates: start: 20171222, end: 20171224
  5. FLUDARABINE [Concomitant]
     Active Substance: FLUDARABINE PHOSPHATE
     Indication: BONE MARROW CONDITIONING REGIMEN
     Dosage: 30 MG/M2, QD
     Route: 042
     Dates: start: 20171222, end: 20171224
  6. ALLOPURINOL. [Concomitant]
     Active Substance: ALLOPURINOL
     Indication: TUMOUR LYSIS SYNDROME
     Dosage: 300 MG, QD
     Route: 048
     Dates: start: 20171222
  7. YESCARTA [Suspect]
     Active Substance: AXICABTAGENE CILOLEUCEL
     Indication: DIFFUSE LARGE B-CELL LYMPHOMA
     Dosage: 2 X 10^6 CD19 CAR+T CELL/KG, 68 ML, SINGLE
     Route: 042
     Dates: start: 20171227, end: 20171227
  8. KEPPRA [Concomitant]
     Active Substance: LEVETIRACETAM
     Indication: PROPHYLAXIS
     Dosage: 500 MG, BID
     Route: 048
     Dates: start: 20171222, end: 20171231
  9. POTASSIUM CHLORIDE. [Concomitant]
     Active Substance: POTASSIUM CHLORIDE
     Dosage: 20-30 MEQ, QD
     Route: 042

REACTIONS (8)
  - Cytokine release syndrome [Recovered/Resolved]
  - Syncope [Recovered/Resolved]
  - Pneumonia [Recovering/Resolving]
  - Positron emission tomogram abnormal [Unknown]
  - Dyspepsia [Recovered/Resolved]
  - Pyrexia [Recovered/Resolved]
  - Therapeutic product effect decreased [Unknown]
  - Nausea [Recovered/Resolved]

NARRATIVE: CASE EVENT DATE: 20171229
